FAERS Safety Report 19868451 (Version 3)
Quarter: 2021Q4

REPORT INFORMATION
  Report Type: Spontaneous
  Country: US (occurrence: US)
  Receive Date: 20210921
  Receipt Date: 20211229
  Transmission Date: 20220303
  Serious: Yes (Other)
  Sender: FDA-Public Use
  Company Number: US-ELI_LILLY_AND_COMPANY-US202109004462

PATIENT
  Age: 52 Year
  Sex: Female

DRUGS (1)
  1. EMGALITY [Suspect]
     Active Substance: GALCANEZUMAB-GNLM
     Indication: Product used for unknown indication
     Dosage: 120 MG, UNKNOWN
     Route: 065
     Dates: start: 20210901

REACTIONS (16)
  - Loss of consciousness [Recovered/Resolved]
  - Loss of consciousness [Recovered/Resolved]
  - Cerebrovascular accident [Unknown]
  - Dyspnoea [Unknown]
  - Feeling abnormal [Unknown]
  - Head injury [Unknown]
  - Disorientation [Unknown]
  - Dysarthria [Unknown]
  - Blood pressure increased [Unknown]
  - Memory impairment [Unknown]
  - Headache [Unknown]
  - Disturbance in attention [Unknown]
  - Anaphylactic shock [Unknown]
  - Injection site pain [Unknown]
  - Drug ineffective [Unknown]
  - Prescribed underdose [Unknown]

NARRATIVE: CASE EVENT DATE: 20210901
